FAERS Safety Report 5858465-4 (Version None)
Quarter: 2008Q3

REPORT INFORMATION
  Report Type: 
  Country: None (occurrence: None)
  Receive Date: 20080826
  Receipt Date: 20080814
  Transmission Date: 20090109
  Serious: Yes (Other)
  Sender: FDA-Public Use
  Company Number: DE-PFIZER INC-2007058018

PATIENT
  Sex: Female
  Weight: 56 kg

DRUGS (5)
  1. NEURONTIN [Suspect]
     Indication: EPILEPSY
     Dosage: DAILY DOSE:2600MG
     Route: 048
  2. NEURONTIN [Interacting]
  3. FOLIC ACID [Interacting]
     Route: 048
  4. LEVOTHYROXINE [Concomitant]
  5. THYRONAJOD [Concomitant]
     Route: 048
     Dates: start: 20071101, end: 20080617

REACTIONS (5)
  - AMNIORRHEXIS [None]
  - DIZZINESS [None]
  - DRUG INEFFECTIVE [None]
  - DRUG INTERACTION [None]
  - EPILEPSY [None]
